FAERS Safety Report 8223236-0 (Version None)
Quarter: 2012Q1

REPORT INFORMATION
  Report Type: 
  Country: None (occurrence: None)
  Receive Date: 20120321
  Receipt Date: 20120312
  Transmission Date: 20120608
  Serious: Yes (Other)
  Sender: FDA-Public Use
  Company Number: US-ROCHE-1022814

PATIENT
  Sex: Female
  Weight: 69.462 kg

DRUGS (8)
  1. NITROSTAT [Concomitant]
  2. ACCUTANE [Suspect]
     Dates: start: 19970101
  3. ACCUTANE [Suspect]
     Dates: start: 19980101
  4. ZESTRIL [Concomitant]
  5. ACCUTANE [Suspect]
     Dates: start: 19990101, end: 20011001
  6. ACCUTANE [Suspect]
     Indication: ACNE CYSTIC
     Dates: start: 19950101
  7. FUROSEMIDE [Concomitant]
  8. POTASSIUM [Concomitant]

REACTIONS (6)
  - OESOPHAGITIS [None]
  - INFLAMMATORY BOWEL DISEASE [None]
  - IRRITABLE BOWEL SYNDROME [None]
  - GASTROOESOPHAGEAL REFLUX DISEASE [None]
  - EMOTIONAL DISTRESS [None]
  - COLITIS ULCERATIVE [None]
